FAERS Safety Report 21568375 (Version 1)
Quarter: 2022Q4

REPORT INFORMATION
  Report Type: Spontaneous
  Country: US (occurrence: None)
  Receive Date: 20221107
  Receipt Date: 20221107
  Transmission Date: 20230113
  Serious: Yes (Hospitalization)
  Sender: FDA-Public Use
  Company Number: None

PATIENT
  Age: 97 Year
  Sex: Male
  Weight: 75.30 kg

DRUGS (1)
  1. FUROSEMIDE [Suspect]
     Active Substance: FUROSEMIDE
     Indication: Peripheral swelling
     Dosage: FREQUENCY : DAILY;?
     Route: 048
     Dates: start: 20220512

REACTIONS (5)
  - Hypotension [None]
  - Blood urea increased [None]
  - Blood creatine increased [None]
  - Blood lactic acid increased [None]
  - Toxicity to various agents [None]

NARRATIVE: CASE EVENT DATE: 20220731
